FAERS Safety Report 23171253 (Version 1)
Quarter: 2023Q4

REPORT INFORMATION
  Report Type: Spontaneous
  Country: EG (occurrence: EG)
  Receive Date: 20231110
  Receipt Date: 20231110
  Transmission Date: 20240109
  Serious: Yes (Other)
  Sender: FDA-Public Use
  Company Number: EG-HIKMA PHARMACEUTICALS-EG-H14001-23-66786

PATIENT
  Age: 33 Year
  Sex: Female
  Weight: 53 kg

DRUGS (15)
  1. DOXORUBICIN [Suspect]
     Active Substance: DOXORUBICIN
     Indication: Hodgkin^s disease
     Dosage: 37.5 MILLIGRAM
     Route: 042
  2. DOXORUBICIN [Suspect]
     Active Substance: DOXORUBICIN
     Dosage: 37.5 MILLIGRAM
     Route: 042
     Dates: start: 20230612
  3. DOXORUBICIN [Suspect]
     Active Substance: DOXORUBICIN
     Dosage: 37.5 MILLIGRAM
     Route: 042
     Dates: start: 20230727
  4. DOXORUBICIN [Suspect]
     Active Substance: DOXORUBICIN
     Dosage: 37.5 MILLIGRAM
     Route: 042
     Dates: start: 20230813
  5. DOXORUBICIN [Suspect]
     Active Substance: DOXORUBICIN
     Dosage: 37.5 MILLIGRAM
     Route: 042
     Dates: start: 20230913
  6. DACARBAZINE [Suspect]
     Active Substance: DACARBAZINE
     Indication: Hodgkin^s disease
     Dosage: 562.5 MILLIGRAM
     Route: 042
  7. DACARBAZINE [Suspect]
     Active Substance: DACARBAZINE
     Dosage: 562.5 MILLIGRAM
     Route: 042
     Dates: start: 20230612
  8. DACARBAZINE [Suspect]
     Active Substance: DACARBAZINE
     Dosage: 562.5 MILLIGRAM
     Route: 042
     Dates: start: 20230727
  9. DACARBAZINE [Suspect]
     Active Substance: DACARBAZINE
     Dosage: 562.5 MILLIGRAM
     Route: 042
     Dates: start: 20230813
  10. DACARBAZINE [Suspect]
     Active Substance: DACARBAZINE
     Dosage: 562.5 MILLIGRAM
     Route: 042
     Dates: start: 20230913
  11. VINCRISTINE SULFATE [Suspect]
     Active Substance: VINCRISTINE SULFATE
     Indication: Hodgkin^s disease
     Dosage: 14 MILLIGRAM
     Route: 042
  12. VINCRISTINE SULFATE [Suspect]
     Active Substance: VINCRISTINE SULFATE
     Dosage: 14 MILLIGRAM
     Route: 042
     Dates: start: 20230612
  13. VINCRISTINE SULFATE [Suspect]
     Active Substance: VINCRISTINE SULFATE
     Dosage: 14 MILLIGRAM
     Route: 042
     Dates: start: 20230727
  14. VINCRISTINE SULFATE [Suspect]
     Active Substance: VINCRISTINE SULFATE
     Dosage: 14 MILLIGRAM
     Route: 042
     Dates: start: 20230813
  15. VINCRISTINE SULFATE [Suspect]
     Active Substance: VINCRISTINE SULFATE
     Dosage: 14 MILLIGRAM
     Route: 042
     Dates: start: 20230913

REACTIONS (4)
  - Neutropenia [Recovering/Resolving]
  - White blood cell count decreased [Recovering/Resolving]
  - Tooth disorder [Unknown]
  - Ear disorder [Unknown]

NARRATIVE: CASE EVENT DATE: 20230626
